FAERS Safety Report 12158403 (Version 1)
Quarter: 2016Q1

REPORT INFORMATION
  Report Type: Spontaneous
  Country: US (occurrence: US)
  Receive Date: 20160308
  Receipt Date: 20160308
  Transmission Date: 20160526
  Serious: Yes (Hospitalization)
  Sender: FDA-Public Use
  Company Number: US-JNJFOC-20150409270

PATIENT
  Age: 84 Year
  Sex: Female

DRUGS (4)
  1. PROLIA [Concomitant]
     Active Substance: DENOSUMAB
  2. IMBRUVICA [Suspect]
     Active Substance: IBRUTINIB
     Indication: CHRONIC LYMPHOCYTIC LEUKAEMIA
     Route: 048
     Dates: start: 20141230
  3. CALCIUM [Concomitant]
     Active Substance: CALCIUM
  4. VITAMIN D3 [Concomitant]
     Active Substance: CHOLECALCIFEROL

REACTIONS (4)
  - Sepsis [Recovering/Resolving]
  - Incorrect dose administered [Not Recovered/Not Resolved]
  - Diarrhoea [Recovering/Resolving]
  - Nasopharyngitis [Recovered/Resolved]

NARRATIVE: CASE EVENT DATE: 20141230
